FAERS Safety Report 11697968 (Version 2)
Quarter: 2015Q4

REPORT INFORMATION
  Report Type: Spontaneous
  Country: US (occurrence: US)
  Receive Date: 20151104
  Receipt Date: 20151104
  Transmission Date: 20160304
  Serious: Yes (Other)
  Sender: FDA-Public Use
  Company Number: US-AKORN PHARMACEUTICALS-2015AKN00601

PATIENT
  Age: 15 Year
  Sex: Female
  Weight: 49.89 kg

DRUGS (3)
  1. MYORISAN [Suspect]
     Active Substance: ISOTRETINOIN
     Indication: ACNE
     Dosage: 40 MG, 2X/DAY
     Route: 048
     Dates: start: 20150508, end: 20151014
  2. HELIOCARE [Concomitant]
     Dosage: UNK, AS NEEDED
  3. MYORISAN [Suspect]
     Active Substance: ISOTRETINOIN
     Dosage: 40 MG, 1X/DAY
     Route: 048
     Dates: start: 20151015, end: 20151020

REACTIONS (3)
  - Irritability [Recovering/Resolving]
  - Mood swings [Unknown]
  - Anger [Unknown]

NARRATIVE: CASE EVENT DATE: 201509
